FAERS Safety Report 13845065 (Version 2)
Quarter: 2017Q3

REPORT INFORMATION
  Report Type: Spontaneous
  Country: JP (occurrence: JP)
  Receive Date: 20170808
  Receipt Date: 20170825
  Transmission Date: 20171127
  Serious: Yes (Other)
  Sender: FDA-Public Use
  Company Number: JP-GILEAD-2017-0286653

PATIENT
  Age: 82 Year
  Sex: Female

DRUGS (3)
  1. MICARDIS [Concomitant]
     Active Substance: TELMISARTAN
  2. HARVONI [Suspect]
     Active Substance: LEDIPASVIR\SOFOSBUVIR
     Indication: PRODUCT USED FOR UNKNOWN INDICATION
     Route: 048
  3. CRESTOR [Concomitant]
     Active Substance: ROSUVASTATIN CALCIUM

REACTIONS (2)
  - Nasopharyngitis [Unknown]
  - Dementia [Unknown]
